FAERS Safety Report 8682395 (Version 2)
Quarter: 2012Q4

REPORT INFORMATION
  Report Type: Report from Study
  Country: FR (occurrence: FR)
  Receive Date: 20120725
  Receipt Date: 20120913
  Transmission Date: 20130627
  Serious: Yes (Other)
  Sender: FDA-Public Use
  Company Number: FR-ACTELION-A-CH2012-69073

PATIENT
  Age: 6 Year
  Sex: Male
  Weight: 23 kg

DRUGS (3)
  1. ZAVESCA [Suspect]
     Indication: NIEMANN-PICK DISEASE
     Dosage: 50 mg, tid
     Route: 048
     Dates: start: 20080710
  2. ZAVESCA [Suspect]
     Dosage: 400 mg, qd
     Route: 048
  3. DEPAMIDE [Suspect]
     Dosage: UNK
     Dates: start: 200810

REACTIONS (3)
  - Epilepsy [Not Recovered/Not Resolved]
  - Cataplexy [Not Recovered/Not Resolved]
  - Thrombocytopenia [Not Recovered/Not Resolved]
